FAERS Safety Report 19032234 (Version 1)
Quarter: 2021Q1

REPORT INFORMATION
  Report Type: Report from Study
  Country: PA (occurrence: PA)
  Receive Date: 20210319
  Receipt Date: 20210319
  Transmission Date: 20210420
  Serious: Yes (Other)
  Sender: FDA-Public Use
  Company Number: NVSC2020PA267550

PATIENT
  Sex: Female

DRUGS (3)
  1. FEMARA [Suspect]
     Active Substance: LETROZOLE
     Indication: BREAST CANCER
     Dosage: UNK
     Route: 065
  2. KISQALI [Suspect]
     Active Substance: RIBOCICLIB
     Indication: BREAST CANCER METASTATIC
     Dosage: 600 MG, QD
     Route: 048
     Dates: start: 20200831
  3. FULVESTRANT. [Suspect]
     Active Substance: FULVESTRANT
     Indication: PRODUCT USED FOR UNKNOWN INDICATION
     Dosage: UNK, MONTHLY
     Route: 065

REACTIONS (13)
  - Tumour marker increased [Recovering/Resolving]
  - Flatulence [Unknown]
  - Hypertension [Unknown]
  - Feeling abnormal [Unknown]
  - Reflux gastritis [Unknown]
  - Pleural effusion [Unknown]
  - Headache [Recovering/Resolving]
  - Chest pain [Unknown]
  - Decreased appetite [Unknown]
  - Skin discolouration [Unknown]
  - Feeling hot [Unknown]
  - Haemoglobin decreased [Unknown]
  - Globulins decreased [Unknown]
